FAERS Safety Report 12626638 (Version 1)
Quarter: 2016Q3

REPORT INFORMATION
  Report Type: Spontaneous
  Country: US (occurrence: US)
  Receive Date: 20160805
  Receipt Date: 20160805
  Transmission Date: 20161109
  Serious: Yes (Hospitalization)
  Sender: FDA-Public Use
  Company Number: US-FRESENIUS MEDICAL CARE RENAL THERAPIES GROUP-FMC-1607-000589

PATIENT
  Age: 59 Year
  Sex: Male
  Weight: 102.6 kg

DRUGS (2)
  1. DELFLEX [Suspect]
     Active Substance: CALCIUM CHLORIDE\DEXTROSE\MAGNESIUM CHLORIDE\SODIUM CHLORIDE\SODIUM LACTATE
     Indication: END STAGE RENAL DISEASE
     Route: 033
  2. BAXTER EXTRANEAL [Concomitant]
     Indication: END STAGE RENAL DISEASE

REACTIONS (5)
  - Haemodialysis [None]
  - Staphylococcus test positive [None]
  - Pseudomonas test positive [None]
  - Wrong technique in product usage process [None]
  - Peritonitis bacterial [Recovered/Resolved]

NARRATIVE: CASE EVENT DATE: 20160401
